FAERS Safety Report 9610684 (Version 4)
Quarter: 2013Q4

REPORT INFORMATION
  Report Type: Spontaneous
  Country: IT (occurrence: IT)
  Receive Date: 20131009
  Receipt Date: 20131216
  Transmission Date: 20140711
  Serious: Yes (Hospitalization)
  Sender: FDA-Public Use
  Company Number: IT-ROCHE-1286833

PATIENT
  Age: 40 Year
  Sex: Male

DRUGS (2)
  1. VALIUM [Suspect]
     Indication: PRODUCT USED FOR UNKNOWN INDICATION
     Route: 048
     Dates: start: 20130809, end: 20130809
  2. XANAX [Suspect]
     Indication: ANXIETY
     Route: 065
     Dates: start: 20130809, end: 20130809

REACTIONS (2)
  - Drug abuse [Unknown]
  - Somnolence [Recovered/Resolved]
